FAERS Safety Report 9772147 (Version 1)
Quarter: 2013Q4

REPORT INFORMATION
  Report Type: Spontaneous
  Country: ES (occurrence: ES)
  Receive Date: 20131219
  Receipt Date: 20131219
  Transmission Date: 20140711
  Serious: Yes (Other)
  Sender: FDA-Public Use
  Company Number: ES-JNJFOC-20131208457

PATIENT
  Sex: Male

DRUGS (2)
  1. PREZISTA [Suspect]
     Indication: HIV INFECTION
     Route: 065
  2. TRUVADA [Concomitant]
     Route: 065

REACTIONS (1)
  - Neutropenia [Not Recovered/Not Resolved]
